FAERS Safety Report 6021814-0 (Version None)
Quarter: 2008Q4

REPORT INFORMATION
  Report Type: 
  Country: None (occurrence: None)
  Receive Date: 20081229
  Receipt Date: 20081217
  Transmission Date: 20090506
  Serious: Yes (Other)
  Sender: FDA-Public Use
  Company Number: FR-PFIZER INC-2008156772

PATIENT

DRUGS (1)
  1. PREGABALIN [Suspect]
     Indication: PAIN

REACTIONS (2)
  - DYSURIA [None]
  - RENAL FAILURE [None]
